FAERS Safety Report 4898004-8 (Version None)
Quarter: 2006Q1

REPORT INFORMATION
  Report Type: 
  Country: None (occurrence: None)
  Receive Date: 20060130
  Receipt Date: 20060119
  Transmission Date: 20060701
  Serious: Yes (Death)
  Sender: FDA-Public Use
  Company Number: B0407993A

PATIENT
  Age: 6 Year
  Sex: Male

DRUGS (9)
  1. THIOGUANINE [Suspect]
     Indication: ACUTE MYELOID LEUKAEMIA
  2. MYLERAN [Suspect]
     Indication: ACUTE MYELOID LEUKAEMIA
  3. IDARUBICIN HCL [Suspect]
     Indication: ACUTE MYELOID LEUKAEMIA
  4. CYTARABINE [Suspect]
     Indication: ACUTE MYELOID LEUKAEMIA
  5. ETOPOSIDE [Suspect]
     Indication: ACUTE MYELOID LEUKAEMIA
  6. FLUDARABINE PHOSPHATE [Suspect]
     Indication: ACUTE MYELOID LEUKAEMIA
  7. METHOTREXATE [Suspect]
     Indication: ACUTE MYELOID LEUKAEMIA
  8. CYCLOPHOSPHAMIDE [Suspect]
     Indication: ACUTE MYELOID LEUKAEMIA
  9. HEMATOPOETIC PROGENITOR CELLS HUMAN [Concomitant]

REACTIONS (5)
  - ABDOMINAL PAIN [None]
  - FOCAL NODULAR HYPERPLASIA [None]
  - HEPATOTOXICITY [None]
  - OBLITERATIVE BRONCHIOLITIS [None]
  - WEIGHT DECREASED [None]
